FAERS Safety Report 12469127 (Version 1)
Quarter: 2016Q2

REPORT INFORMATION
  Report Type: Spontaneous
  Country: US (occurrence: US)
  Receive Date: 20160615
  Receipt Date: 20160615
  Transmission Date: 20160815
  Serious: No
  Sender: FDA-Public Use
  Company Number: US-OMEROS CORPORATION-2016OME00012

PATIENT

DRUGS (1)
  1. OMIDRIA [Suspect]
     Active Substance: KETOROLAC\PHENYLEPHRINE

REACTIONS (1)
  - Corneal opacity [Recovered/Resolved]
